FAERS Safety Report 7457765-4 (Version None)
Quarter: 2011Q1

REPORT INFORMATION
  Report Type: 
  Country: None (occurrence: None)
  Receive Date: 20110302
  Receipt Date: 20101208
  Transmission Date: 20110831
  Serious: Yes (Other)
  Sender: FDA-Public Use
  Company Number: 163-21880-10090174

PATIENT
  Age: 60 Year
  Sex: Male

DRUGS (2)
  1. REVLIMID [Suspect]
     Indication: MULTIPLE MYELOMA
     Dosage: 25 MG, 1 IN 1 D, PO, 5 MG, 1 IN 1 D, PO
     Route: 048
     Dates: start: 20100709
  2. REVLIMID [Suspect]
     Indication: MULTIPLE MYELOMA
     Dosage: 25 MG, 1 IN 1 D, PO, 5 MG, 1 IN 1 D, PO
     Route: 048
     Dates: start: 20100101

REACTIONS (4)
  - RED BLOOD CELL COUNT DECREASED [None]
  - NEUTROPENIA [None]
  - CONSTIPATION [None]
  - SOMNOLENCE [None]
